FAERS Safety Report 15832646 (Version 1)
Quarter: 2019Q1

REPORT INFORMATION
  Report Type: Spontaneous
  Country: US (occurrence: US)
  Receive Date: 20190116
  Receipt Date: 20190116
  Transmission Date: 20190417
  Serious: Yes (Other)
  Sender: FDA-Public Use
  Company Number: None

PATIENT
  Age: 79 Year
  Sex: Female

DRUGS (1)
  1. DULOXETINE DR [Suspect]
     Active Substance: DULOXETINE
     Indication: NEURALGIA
     Dates: start: 20181201, end: 20190116

REACTIONS (2)
  - Mental fatigue [None]
  - Asthenia [None]

NARRATIVE: CASE EVENT DATE: 20190116
